FAERS Safety Report 7458228-2 (Version None)
Quarter: 2011Q1

REPORT INFORMATION
  Report Type: 
  Country: None (occurrence: None)
  Receive Date: 20110302
  Receipt Date: 20100719
  Transmission Date: 20110831
  Serious: No
  Sender: FDA-Public Use
  Company Number: 163-21880-08060087

PATIENT
  Age: 77 Year
  Sex: Male

DRUGS (2)
  1. REVLIMID [Suspect]
  2. REVLIMID [Suspect]
     Indication: MULTIPLE MYELOMA
     Dosage: 25 MG, DAY 1-21 Q 4 WEEKS, PO
     Route: 048
     Dates: start: 20080530

REACTIONS (5)
  - PAIN IN EXTREMITY [None]
  - FATIGUE [None]
  - PRURITUS [None]
  - MASS [None]
  - ASTHENIA [None]
